FAERS Safety Report 11140057 (Version 1)
Quarter: 2015Q2

REPORT INFORMATION
  Report Type: Spontaneous
  Country: US (occurrence: US)
  Receive Date: 20150527
  Receipt Date: 20150527
  Transmission Date: 20150821
  Serious: No
  Sender: FDA-Public Use
  Company Number: US-ENDO PHARMACEUTICALS INC.-SPLN20140085

PATIENT
  Age: 16 Year
  Sex: Male

DRUGS (1)
  1. SUPPRELIN LA [Suspect]
     Active Substance: HISTRELIN ACETATE
     Indication: TRANSGENDER HORMONAL THERAPY
     Route: 058
     Dates: start: 201207, end: 2014

REACTIONS (3)
  - Incorrect drug administration duration [Unknown]
  - Device breakage [Unknown]
  - Procedural complication [Unknown]
